FAERS Safety Report 20079976 (Version 2)
Quarter: 2021Q4

REPORT INFORMATION
  Report Type: Spontaneous
  Country: JP (occurrence: JP)
  Receive Date: 20211117
  Receipt Date: 20211203
  Transmission Date: 20220303
  Serious: Yes (Hospitalization, Other)
  Sender: FDA-Public Use
  Company Number: JP-Accord-245226

PATIENT
  Age: 81 Year
  Sex: Female

DRUGS (12)
  1. GLIMEPIRIDE [Interacting]
     Active Substance: GLIMEPIRIDE
     Indication: Hypertension
     Dosage: TWICE A DAY, AFTER BREAKFAST AND DINNER
  2. VOGLIBOSE [Interacting]
     Active Substance: VOGLIBOSE
     Indication: Hypertension
     Dosage: THREE TIMES A DAY JUST BEFORE MEALS
  3. WARFARIN [Interacting]
     Active Substance: WARFARIN
     Indication: Thrombosis prophylaxis
     Dosage: 2.5MG, 4MG, 3.5MG, 2MG, 5MG, 2MG, 1MG, ALL DOES DAILY
  4. BUCOLOME [Interacting]
     Active Substance: BUCOLOME
     Indication: Product used for unknown indication
  5. AMLODIPINE [Concomitant]
     Active Substance: AMLODIPINE BESYLATE
     Dosage: ONCE A DAY AFTER BREAKFAST
  6. TELMISARTAN [Concomitant]
     Active Substance: TELMISARTAN
     Dosage: ONCE A DAY AFTER BREAKFAST
  7. CARBOCYSTEINE LYSINE [Concomitant]
     Active Substance: CARBOCYSTEINE LYSINE
  8. MAGNESIUM OXIDE [Concomitant]
     Active Substance: MAGNESIUM OXIDE
  9. SODIUM FERROUS CITRATE [Concomitant]
     Active Substance: SODIUM FERROUS CITRATE
  10. FUROSEMIDE [Concomitant]
     Active Substance: FUROSEMIDE
  11. HEPARIN SODIUM [Concomitant]
     Active Substance: HEPARIN SODIUM
     Dosage: 14400 UNITS/DAY
  12. INSULIN NOS [Concomitant]
     Active Substance: INSULIN NOS
     Indication: Type 2 diabetes mellitus
     Dosage: ULTRA-RAPID-ACTING

REACTIONS (2)
  - Hypoglycaemia [Recovered/Resolved]
  - Drug interaction [Unknown]
